FAERS Safety Report 5380332-3 (Version None)
Quarter: 2007Q3

REPORT INFORMATION
  Report Type: 
  Country: None (occurrence: None)
  Receive Date: 20070706
  Receipt Date: 20070518
  Transmission Date: 20080115
  Serious: No
  Sender: FDA-Public Use
  Company Number: A0651944A

PATIENT
  Age: 63 Year
  Sex: Female

DRUGS (5)
  1. TYKERB [Suspect]
     Indication: BREAST CANCER
     Dosage: 1250MG PER DAY
     Route: 048
     Dates: start: 20070415
  2. XELODA [Suspect]
     Indication: DRUG USE FOR UNKNOWN INDICATION
     Route: 065
     Dates: start: 20070415
  3. ZOFRAN [Concomitant]
  4. NORCO [Concomitant]
  5. NORCO [Concomitant]

REACTIONS (6)
  - CHAPPED LIPS [None]
  - DIARRHOEA [None]
  - NAUSEA [None]
  - ORAL PAIN [None]
  - RASH [None]
  - RESTLESSNESS [None]
